FAERS Safety Report 8173299-6 (Version None)
Quarter: 2012Q1

REPORT INFORMATION
  Report Type: 
  Country: None (occurrence: None)
  Receive Date: 20120104
  Receipt Date: 20110923
  Transmission Date: 20120608
  Serious: No
  Sender: FDA-Public Use
  Company Number: 2011HGS-002577

PATIENT
  Sex: Female

DRUGS (3)
  1. BENLYSTA [Suspect]
     Dosage: INTRAVENOUS DRIP
     Route: 041
     Dates: start: 20110101, end: 20110101
  2. PREDNISONE [Concomitant]
  3. ARAVA (LEFLUNOMIDE-) (LEFLUNOMIDE) [Concomitant]

REACTIONS (1)
  - POLYNEUROPATHY [None]
